FAERS Safety Report 11176367 (Version 2)
Quarter: 2015Q2

REPORT INFORMATION
  Report Type: Spontaneous
  Country: CA (occurrence: CA)
  Receive Date: 20150610
  Receipt Date: 20150616
  Transmission Date: 20150821
  Serious: Yes (Other)
  Sender: FDA-Public Use
  Company Number: CA-ROCHE-1590937

PATIENT
  Sex: Female

DRUGS (1)
  1. XOLAIR [Suspect]
     Active Substance: OMALIZUMAB
     Indication: ANAPHYLACTIC REACTION
     Route: 058

REACTIONS (11)
  - Dysphagia [Recovered/Resolved]
  - Upper airway obstruction [Unknown]
  - Product use issue [Unknown]
  - Chest pain [Recovered/Resolved]
  - Dysphonia [Recovered/Resolved]
  - Dyspnoea [Unknown]
  - Dyspnoea [Recovered/Resolved]
  - Chest discomfort [Unknown]
  - Nausea [Recovered/Resolved]
  - Sensation of foreign body [Unknown]
  - Choking [Unknown]

NARRATIVE: CASE EVENT DATE: 20150602
